FAERS Safety Report 9814984 (Version 1)
Quarter: 2014Q1

REPORT INFORMATION
  Report Type: Report from Study
  Country: US (occurrence: US)
  Receive Date: 20140114
  Receipt Date: 20140114
  Transmission Date: 20141002
  Serious: Yes (Death)
  Sender: FDA-Public Use
  Company Number: US-ROCHE-1330804

PATIENT
  Sex: Male

DRUGS (22)
  1. AVASTIN [Suspect]
     Indication: BRONCHIAL CARCINOMA
     Route: 042
     Dates: start: 20120126, end: 20120305
  2. AVASTIN [Suspect]
     Indication: METASTASES TO NERVOUS SYSTEM
     Route: 042
     Dates: start: 20120305, end: 20120326
  3. AVASTIN [Suspect]
     Route: 042
     Dates: start: 20120326
  4. NYSTATIN [Concomitant]
  5. ALIMTA [Concomitant]
     Route: 042
     Dates: start: 20120126
  6. ALIMTA [Concomitant]
     Route: 042
     Dates: start: 20120126, end: 20120305
  7. ALIMTA [Concomitant]
     Route: 042
     Dates: start: 20120305, end: 20120326
  8. ALIMTA [Concomitant]
     Route: 042
     Dates: start: 20120326
  9. ATIVAN [Concomitant]
     Route: 042
     Dates: start: 20120126
  10. BENADRYL (UNITED STATES) [Concomitant]
     Route: 042
     Dates: start: 20120305
  11. BENADRYL (UNITED STATES) [Concomitant]
     Route: 042
     Dates: start: 20120126, end: 20120305
  12. ZOFRAN [Concomitant]
     Route: 042
     Dates: start: 20120126
  13. TYLENOL [Concomitant]
     Route: 048
     Dates: start: 20120126
  14. TAXOL [Concomitant]
     Route: 042
     Dates: start: 20120305, end: 20120326
  15. TAXOL [Concomitant]
     Route: 042
     Dates: start: 20120326
  16. PEPCID [Concomitant]
     Route: 042
     Dates: start: 20120305
  17. DECADRON [Concomitant]
     Route: 042
     Dates: start: 20120305
  18. VITAMIN B12 [Concomitant]
     Route: 042
     Dates: start: 20120126
  19. NEULASTA [Concomitant]
     Route: 065
  20. DEXAMETHASONE [Concomitant]
     Route: 065
  21. LEVAQUIN [Concomitant]
  22. AQUAPHOR (GERMANY) [Concomitant]

REACTIONS (9)
  - Death [Fatal]
  - Productive cough [Unknown]
  - Chest pain [Unknown]
  - Fatigue [Unknown]
  - Nausea [Unknown]
  - Appetite disorder [Unknown]
  - Dry skin [Unknown]
  - Poor quality sleep [Unknown]
  - Candida infection [Unknown]
